FAERS Safety Report 4504029-4 (Version None)
Quarter: 2004Q3

REPORT INFORMATION
  Report Type: 
  Country: None (occurrence: None)
  Receive Date: 20040927
  Receipt Date: 20040726
  Transmission Date: 20050211
  Serious: No
  Sender: FDA-Public Use
  Company Number: USA040671402

PATIENT
  Age: 7 Year
  Sex: Male
  Weight: 25 kg

DRUGS (1)
  1. STRATTERA [Suspect]
     Indication: ATTENTION DEFICIT/HYPERACTIVITY DISORDER
     Dosage: 25 MG/1 DAY
     Dates: start: 20040626

REACTIONS (11)
  - BOREDOM [None]
  - DECREASED APPETITE [None]
  - DRUG EFFECT DECREASED [None]
  - DRUG INEFFECTIVE [None]
  - FATIGUE [None]
  - IRRITABILITY [None]
  - MOOD SWINGS [None]
  - MYDRIASIS [None]
  - NERVOUSNESS [None]
  - RESTLESSNESS [None]
  - SOMNOLENCE [None]
